FAERS Safety Report 19260422 (Version 1)
Quarter: 2021Q2

REPORT INFORMATION
  Report Type: Spontaneous
  Country: US (occurrence: US)
  Receive Date: 20210514
  Receipt Date: 20210514
  Transmission Date: 20210717
  Serious: No
  Sender: FDA-Public Use
  Company Number: US-KALA PHARAMACEUTICALS-2021KLA00025

PATIENT
  Sex: Female

DRUGS (1)
  1. EYSUVIS [Suspect]
     Active Substance: LOTEPREDNOL ETABONATE
     Indication: DRY EYE
     Dosage: UNK UNK, 3X/DAY
     Route: 047
     Dates: start: 202102, end: 202102

REACTIONS (6)
  - Off label use [Recovered/Resolved]
  - Nausea [Unknown]
  - Headache [Unknown]
  - Eye irritation [Unknown]
  - Dizziness [Unknown]
  - Retching [Unknown]

NARRATIVE: CASE EVENT DATE: 202102
